FAERS Safety Report 24687455 (Version 1)
Quarter: 2024Q4

REPORT INFORMATION
  Report Type: Spontaneous
  Country: AT (occurrence: AT)
  Receive Date: 20241202
  Receipt Date: 20241202
  Transmission Date: 20250115
  Serious: Yes (Other)
  Sender: ANI
  Company Number: AT-ANIPHARMA-2024-AT-000019

PATIENT
  Sex: Female

DRUGS (5)
  1. ARIMIDEX [Suspect]
     Active Substance: ANASTROZOLE
     Indication: Breast cancer
     Route: 048
     Dates: start: 2019
  2. FULVESTRANT [Suspect]
     Active Substance: FULVESTRANT
     Indication: Breast cancer
     Route: 030
     Dates: start: 201806, end: 201810
  3. DENOSUMAB [Concomitant]
     Active Substance: DENOSUMAB
     Dates: start: 2013, end: 2020
  4. DEVICE [Suspect]
     Active Substance: DEVICE
     Indication: Breast cancer
  5. PALBOCICLIB [Suspect]
     Active Substance: PALBOCICLIB
     Indication: Breast cancer
     Route: 048

REACTIONS (5)
  - Thrombocytopenia [Unknown]
  - Erythropenia [Unknown]
  - Leukopenia [Unknown]
  - Stomatitis [Unknown]
  - Rash [Unknown]
